FAERS Safety Report 6468529-2 (Version None)
Quarter: 2009Q4

REPORT INFORMATION
  Report Type: 
  Country: None (occurrence: None)
  Receive Date: 20091203
  Receipt Date: 20091124
  Transmission Date: 20100525
  Serious: Yes (Hospitalization, Other)
  Sender: FDA-Public Use
  Company Number: FR-JNJFOC-20091107292

PATIENT
  Age: 89 Year
  Sex: Male

DRUGS (9)
  1. TAVANIC [Suspect]
     Indication: LUNG DISORDER
     Route: 048
     Dates: start: 20090130, end: 20090202
  2. GAVISCON(ALUMINIUM HYDROXIDE GEL, DRIED MAGNESIUM TRISILICATE) [Concomitant]
     Route: 065
  3. LOXEN [Concomitant]
     Route: 065
  4. LEVOTHYROXINE SODIUM [Concomitant]
     Route: 065
  5. AMOXICILLIN AND CLAVULANATE POTASSIUM [Concomitant]
     Indication: LUNG DISORDER
     Route: 065
     Dates: start: 20090130, end: 20090130
  6. CALCIPARINE [Concomitant]
     Indication: LUNG DISORDER
     Route: 065
     Dates: start: 20090130
  7. PLAVIX [Concomitant]
     Route: 065
  8. MOTILIUM [Concomitant]
     Route: 065
  9. FLUDEX [Concomitant]
     Route: 065

REACTIONS (4)
  - BLOOD CREATINE INCREASED [None]
  - C-REACTIVE PROTEIN INCREASED [None]
  - HALLUCINATION, VISUAL [None]
  - PSYCHOMOTOR HYPERACTIVITY [None]
